FAERS Safety Report 21781328 (Version 1)
Quarter: 2022Q4

REPORT INFORMATION
  Report Type: Spontaneous
  Country: DK (occurrence: DK)
  Receive Date: 20221227
  Receipt Date: 20221227
  Transmission Date: 20230112
  Serious: Yes (Hospitalization)
  Sender: FDA-Public Use
  Company Number: DK-BAYER-2022P030631

PATIENT
  Age: 75 Year
  Sex: Male

DRUGS (1)
  1. XARELTO [Suspect]
     Active Substance: RIVAROXABAN
     Indication: Product used for unknown indication
     Route: 048

REACTIONS (7)
  - Ecchymosis [Recovered/Resolved]
  - Mouth haemorrhage [Recovered/Resolved]
  - Tonsillar haemorrhage [Recovered/Resolved]
  - Laryngeal haematoma [Recovered/Resolved]
  - Laryngeal oedema [Recovered/Resolved]
  - Activated partial thromboplastin time prolonged [Recovered/Resolved]
  - Haemoglobin decreased [Recovered/Resolved]
